FAERS Safety Report 6692286-8 (Version None)
Quarter: 2010Q2

REPORT INFORMATION
  Report Type: 
  Country: None (occurrence: None)
  Receive Date: 20100419
  Receipt Date: 20100415
  Transmission Date: 20101027
  Serious: Yes (Death, Hospitalization)
  Sender: FDA-Public Use
  Company Number: 2010SP020960

PATIENT
  Age: 79 Year
  Sex: Male

DRUGS (2)
  1. TEMODAL [Suspect]
     Indication: GLIOMA
     Dosage: ; PO
     Route: 048
     Dates: start: 20081016, end: 20081020
  2. KEPPRA [Concomitant]

REACTIONS (3)
  - ABNORMAL BEHAVIOUR [None]
  - DISEASE PROGRESSION [None]
  - GLIOMA [None]
